FAERS Safety Report 8256585-0 (Version None)
Quarter: 2012Q1

REPORT INFORMATION
  Report Type: 
  Country: None (occurrence: None)
  Receive Date: 20120326
  Receipt Date: 20120227
  Transmission Date: 20120608
  Serious: Yes (Death, Hospitalization)
  Sender: FDA-Public Use
  Company Number: UTC-015579

PATIENT
  Age: 45 Year
  Sex: Female
  Weight: 74.1 kg

DRUGS (4)
  1. DIURETICS (DIURETICS) [Concomitant]
  2. TYVASO [Suspect]
  3. TYVASO [Suspect]
     Indication: COR PULMONALE CHRONIC
     Dosage: 18-72 MICROGRAMS (4 IN 1 D), INHALATION
     Route: 055
     Dates: start: 20110830
  4. ADCIRCA [Concomitant]

REACTIONS (1)
  - PROCEDURAL COMPLICATION [None]
